FAERS Safety Report 9449335 (Version 3)
Quarter: 2015Q4

REPORT INFORMATION
  Report Type: Spontaneous
  Country: US (occurrence: US)
  Receive Date: 20130808
  Receipt Date: 20151105
  Transmission Date: 20160305
  Serious: Yes (Hospitalization, Congenital Anomaly, Other)
  Sender: FDA-Public Use
  Company Number: US-RB-057013-13

PATIENT

DRUGS (12)
  1. GENERIC BUPRENORPHINE [Suspect]
     Active Substance: BUPRENORPHINE
     Indication: DRUG DEPENDENCE
     Dosage: UNK
     Route: 064
     Dates: end: 20130712
  2. PROZAC [Suspect]
     Active Substance: FLUOXETINE HYDROCHLORIDE
     Indication: ANXIETY
     Route: 064
     Dates: start: 201211, end: 20130712
  3. HYDROXYZINE [Suspect]
     Active Substance: HYDROXYZINE\HYDROXYZINE HYDROCHLORIDE
     Indication: ANXIETY
     Route: 064
     Dates: start: 201211, end: 20130712
  4. TYLENOL [Suspect]
     Active Substance: ACETAMINOPHEN
     Indication: PAIN
     Dosage: DOSING DETAILS UNKNOWN
     Route: 064
  5. NICOTINE. [Suspect]
     Active Substance: NICOTINE
     Indication: TOBACCO USER
     Dosage: DOSING DETAILS UNKNOWN
     Route: 064
     Dates: start: 201211, end: 20130712
  6. GENERIC BUPRENORPHINE [Suspect]
     Active Substance: BUPRENORPHINE
     Dosage: UNK
     Route: 063
     Dates: start: 201307
  7. KLONOPIN [Suspect]
     Active Substance: CLONAZEPAM
     Indication: ANXIETY
     Dosage: TAPERING DOSES FROM 3 MG
     Route: 064
     Dates: end: 20130228
  8. FLUOXETINE [Suspect]
     Active Substance: FLUOXETINE HYDROCHLORIDE
     Route: 063
  9. KLONOPIN [Suspect]
     Active Substance: CLONAZEPAM
     Dosage: TAPERING DOSES FROM 8 MG TO 0.5 MG
     Route: 064
     Dates: start: 201303, end: 201303
  10. NICOTINE. [Suspect]
     Active Substance: NICOTINE
     Dosage: UNKNOWN DOSING DETAILS
     Route: 063
  11. FLUOXETINE [Suspect]
     Active Substance: FLUOXETINE HYDROCHLORIDE
     Indication: DEPRESSION
     Route: 064
  12. TYLENOL [Suspect]
     Active Substance: ACETAMINOPHEN
     Dosage: UNKNOWN DOSING DETAILS
     Route: 063

REACTIONS (9)
  - Premature baby [Recovered/Resolved]
  - Congenital jaw malformation [Not Recovered/Not Resolved]
  - Respiratory disorder neonatal [Not Recovered/Not Resolved]
  - Exposure during breast feeding [Recovered/Resolved]
  - Foetal exposure during pregnancy [Recovered/Resolved]
  - Feeding disorder of infancy or early childhood [Not Recovered/Not Resolved]
  - Rhabdomyosarcoma [Not Recovered/Not Resolved]
  - Childhood disintegrative disorder [Not Recovered/Not Resolved]
  - Drug withdrawal syndrome neonatal [Recovered/Resolved]

NARRATIVE: CASE EVENT DATE: 201307
